FAERS Safety Report 4462178-3 (Version None)
Quarter: 2004Q3

REPORT INFORMATION
  Report Type: 
  Country: None (occurrence: None)
  Receive Date: 20040927
  Receipt Date: 20040910
  Transmission Date: 20050211
  Serious: Yes (Hospitalization)
  Sender: FDA-Public Use
  Company Number: THYM-10179

PATIENT
  Age: 74 Year
  Sex: Female
  Weight: 45 kg

DRUGS (7)
  1. THYMOGLOBULIN [Suspect]
     Indication: APLASTIC ANAEMIA
     Dosage: 150 MG IV
     Route: 042
     Dates: start: 20040507, end: 20040507
  2. DIGOXIN [Concomitant]
  3. ARICEPT [Concomitant]
  4. SYNTHROID [Concomitant]
  5. COZAAR [Concomitant]
  6. ZOLOFT [Concomitant]
  7. UNSPECIFIED INHALERS [Concomitant]

REACTIONS (8)
  - CHEST DISCOMFORT [None]
  - DYSPNOEA [None]
  - HAEMOGLOBIN DECREASED [None]
  - INFUSION RELATED REACTION [None]
  - LABORATORY TEST ABNORMAL [None]
  - PLATELET COUNT DECREASED [None]
  - RASH [None]
  - WHITE BLOOD CELL COUNT DECREASED [None]
